FAERS Safety Report 6655038-0 (Version None)
Quarter: 2010Q1

REPORT INFORMATION
  Report Type: 
  Country: None (occurrence: None)
  Receive Date: 20100329
  Receipt Date: 20100313
  Transmission Date: 20100710
  Serious: Yes (Other)
  Sender: FDA-Public Use
  Company Number: US-JNJFOC-20050704568

PATIENT
  Sex: Female

DRUGS (5)
  1. LEVAQUIN [Suspect]
     Indication: TUBERCULOSIS
     Route: 042
  2. AMIKACIN [Concomitant]
     Indication: TUBERCULOSIS
  3. INH [Concomitant]
     Indication: TUBERCULOSIS
  4. ETHAMBUTOL HYDROCHLORIDE [Concomitant]
     Indication: TUBERCULOSIS
  5. RIFAMPIN [Concomitant]
     Indication: TUBERCULOSIS

REACTIONS (1)
  - DEAFNESS [None]
